FAERS Safety Report 5330747-4 (Version None)
Quarter: 2007Q2

REPORT INFORMATION
  Report Type: 
  Country: None (occurrence: None)
  Receive Date: 20070522
  Receipt Date: 20070509
  Transmission Date: 20071010
  Serious: Yes (Other)
  Sender: FDA-Public Use
  Company Number: US-KINGPHARMUSA00001-K200700577

PATIENT

DRUGS (3)
  1. SONATA [Suspect]
  2. NUMEROUS PRESCRIBED MEDS [Concomitant]
  3. AMBIEN [Concomitant]

REACTIONS (3)
  - ABNORMAL SLEEP-RELATED EVENT [None]
  - ALCOHOL USE [None]
  - ROAD TRAFFIC ACCIDENT [None]
